FAERS Safety Report 6549143-7 (Version None)
Quarter: 2010Q1

REPORT INFORMATION
  Report Type: 
  Country: None (occurrence: None)
  Receive Date: 20100125
  Receipt Date: 20100111
  Transmission Date: 20100710
  Serious: Yes (Hospitalization)
  Sender: FDA-Public Use
  Company Number: FR-NAPPMUNDI-GBR-2010-0006021

PATIENT
  Sex: Male
  Weight: 2.09 kg

DRUGS (3)
  1. OXYCONTIN [Suspect]
     Indication: DRUG USE FOR UNKNOWN INDICATION
     Route: 064
  2. ACTISKENAN [Suspect]
     Indication: DRUG USE FOR UNKNOWN INDICATION
     Route: 064
  3. CELESTENE                          /00008501/ [Concomitant]

REACTIONS (3)
  - PREMATURE BABY [None]
  - RESPIRATORY DISTRESS [None]
  - WITHDRAWAL SYNDROME [None]
